FAERS Safety Report 25629538 (Version 1)
Quarter: 2025Q3

REPORT INFORMATION
  Report Type: Other
  Country: EU (occurrence: EU)
  Receive Date: 20250731
  Receipt Date: 20250731
  Transmission Date: 20251020
  Serious: Yes (Hospitalization, Other)
  Sender: INCYTE
  Company Number: None

PATIENT
  Age: 81 Year

DRUGS (2)
  1. RUXOLITINIB [Suspect]
     Active Substance: RUXOLITINIB
     Indication: VEXAS syndrome
     Dosage: 10 MG, QD
  2. RUXOLITINIB [Suspect]
     Active Substance: RUXOLITINIB
     Dosage: 20 MG, QD

REACTIONS (3)
  - Hepatic cytolysis [Recovered/Resolved]
  - Listeriosis [Recovered/Resolved]
  - Thrombosis [Recovered/Resolved]
